FAERS Safety Report 22047789 (Version 1)
Quarter: 2023Q1

REPORT INFORMATION
  Report Type: Report from Study
  Country: CN (occurrence: CN)
  Receive Date: 20230301
  Receipt Date: 20230301
  Transmission Date: 20230417
  Serious: Yes (Hospitalization, Other)
  Sender: FDA-Public Use
  Company Number: CN-JNJFOC-20230246178

PATIENT

DRUGS (4)
  1. SPORANOX [Suspect]
     Active Substance: ITRACONAZOLE
     Indication: Coccidioidomycosis
     Route: 065
  2. SPORANOX [Suspect]
     Active Substance: ITRACONAZOLE
     Indication: Histoplasmosis
  3. SPORANOX [Suspect]
     Active Substance: ITRACONAZOLE
     Indication: Onychomycosis
  4. SPORANOX [Suspect]
     Active Substance: ITRACONAZOLE
     Indication: Bronchopulmonary aspergillosis

REACTIONS (12)
  - Hypokalaemia [Unknown]
  - Hypomagnesaemia [Unknown]
  - Hypertension [Unknown]
  - Acquired apparent mineralocorticoid excess [Unknown]
  - Pseudoaldosteronism [Unknown]
  - Electrolyte imbalance [Unknown]
  - Hyponatraemia [Unknown]
  - Cortisol decreased [Unknown]
  - Metabolic alkalosis [Unknown]
  - Blood bicarbonate decreased [Unknown]
  - Drug level increased [Unknown]
  - Off label use [Unknown]
